FAERS Safety Report 10564762 (Version 3)
Quarter: 2024Q4

REPORT INFORMATION
  Report Type: Spontaneous
  Country: DE (occurrence: DE)
  Receive Date: 20141105
  Receipt Date: 20241024
  Transmission Date: 20250115
  Serious: Yes (Hospitalization, Other)
  Sender: AUROBINDO
  Company Number: DE-AUROBINDO-AUR-APL-2014-10250

PATIENT
  Age: 63 Year
  Sex: Female
  Weight: 72 kg

DRUGS (8)
  1. RAMIPRIL [Interacting]
     Active Substance: RAMIPRIL
     Indication: Product used for unknown indication
     Dosage: 2.5 MILLIGRAM
     Route: 048
     Dates: start: 2008
  2. RAMIPRIL [Interacting]
     Active Substance: RAMIPRIL
     Dosage: 2.5 MILLIGRAM, ONCE A DAY
     Route: 048
  3. ANASTROZOLE [Interacting]
     Active Substance: ANASTROZOLE
     Indication: Product used for unknown indication
     Dosage: 1 MG, EVERY MORNING
     Route: 048
     Dates: start: 2006
  4. OXYBUTYNIN [Interacting]
     Active Substance: OXYBUTYNIN
     Indication: Routine health maintenance
     Dosage: 5 MG, EVERY MORNING
     Route: 048
     Dates: start: 2009
  5. OXYBUTYNIN [Interacting]
     Active Substance: OXYBUTYNIN
     Dosage: 5 MILLIGRAM, ONCE A DAY
     Route: 048
     Dates: start: 2009
  6. OXYBUTYNIN [Interacting]
     Active Substance: OXYBUTYNIN
     Dosage: 5 MILLIGRAM, ONCE A DAY IN THE MORNING
     Route: 048
     Dates: start: 2009
  7. GREEN TEA LEAF [Suspect]
     Active Substance: GREEN TEA LEAF
     Indication: Prophylaxis
     Dosage: 725 MILLIGRAM, ONCE A DAY (725 MG, DAILY AFTER LUNCH)
     Route: 048
     Dates: start: 20101221, end: 20110404
  8. GREEN TEA LEAF [Suspect]
     Active Substance: GREEN TEA LEAF
     Indication: Breast cancer recurrent

REACTIONS (15)
  - Hepatocellular injury [Recovered/Resolved]
  - Hepatitis acute [Recovered/Resolved]
  - Cholestasis [Recovered/Resolved]
  - Faeces discoloured [Recovered/Resolved]
  - Jaundice [Recovered/Resolved]
  - Transaminases increased [Recovered/Resolved]
  - Chromaturia [Recovered/Resolved]
  - Fatigue [Recovered/Resolved]
  - Pruritus [Recovered/Resolved]
  - Drug interaction [Recovered/Resolved]
  - Portal tract inflammation [Recovered/Resolved]
  - Ocular icterus [Recovered/Resolved]
  - Macrophage activation [Recovered/Resolved]
  - Aspartate aminotransferase increased [Recovered/Resolved]
  - Alanine aminotransferase increased [Recovered/Resolved]

NARRATIVE: CASE EVENT DATE: 20110203
